FAERS Safety Report 6224690-6 (Version None)
Quarter: 2009Q2

REPORT INFORMATION
  Report Type: 
  Country: None (occurrence: None)
  Receive Date: 20090612
  Receipt Date: 20090325
  Transmission Date: 20091009
  Serious: No
  Sender: FDA-Public Use
  Company Number: US-ABBOTT-09P-163-0564786-00

PATIENT
  Sex: Female
  Weight: 70.824 kg

DRUGS (2)
  1. HUMIRA [Suspect]
     Indication: RHEUMATOID ARTHRITIS
     Dates: start: 20080804, end: 20081201
  2. MANY SUPPLEMENTS [Concomitant]
     Indication: DIABETES MELLITUS

REACTIONS (3)
  - CUTANEOUS SARCOIDOSIS [None]
  - DIABETES MELLITUS [None]
  - TREMOR [None]
